FAERS Safety Report 25298595 (Version 1)
Quarter: 2025Q2

REPORT INFORMATION
  Report Type: Spontaneous
  Country: US (occurrence: US)
  Receive Date: 20250512
  Receipt Date: 20250512
  Transmission Date: 20250716
  Serious: No
  Sender: MERCK SHARP & DOHME LLC
  Company Number: US-009507513-2282123

PATIENT
  Sex: Female

DRUGS (1)
  1. KEYTRUDA [Suspect]
     Active Substance: PEMBROLIZUMAB
     Indication: Lung neoplasm malignant
     Dosage: UNKNOWN/ EVERY 3 WEEKS
     Route: 042
     Dates: start: 202410

REACTIONS (3)
  - Blood pressure increased [Not Recovered/Not Resolved]
  - Frustration tolerance decreased [Unknown]
  - Tension [Unknown]
